FAERS Safety Report 18218357 (Version 2)
Quarter: 2020Q4

REPORT INFORMATION
  Report Type: Spontaneous
  Country: BH (occurrence: BH)
  Receive Date: 20200901
  Receipt Date: 20201027
  Transmission Date: 20210113
  Serious: Yes (Hospitalization, Other)
  Sender: FDA-Public Use
  Company Number: BH-LUPIN PHARMACEUTICALS INC.-2020-05133

PATIENT
  Age: 50 Year
  Sex: Female

DRUGS (3)
  1. CLOBETASOL [Suspect]
     Active Substance: CLOBETASOL
     Indication: XEROSIS
     Dosage: UNK UNK, QD, DILUTED CLOBETASOL PROPIONATE 0.05% IN AQUEOUS CREAM, 200 G
     Route: 061
     Dates: start: 2015
  2. LANTUS [Concomitant]
     Active Substance: INSULIN GLARGINE
     Indication: DIABETES MELLITUS
     Dosage: UNK
     Route: 065
  3. METFORMIN [Concomitant]
     Active Substance: METFORMIN HYDROCHLORIDE
     Indication: DIABETES MELLITUS
     Dosage: UNK
     Route: 065

REACTIONS (3)
  - Intentional product misuse [Unknown]
  - Adrenal insufficiency [Recovering/Resolving]
  - Drug withdrawal syndrome [Unknown]
